FAERS Safety Report 8417992-6 (Version None)
Quarter: 2012Q2

REPORT INFORMATION
  Report Type: 
  Country: None (occurrence: None)
  Receive Date: 20120607
  Receipt Date: 20120530
  Transmission Date: 20120825
  Serious: Yes (Hospitalization)
  Sender: FDA-Public Use
  Company Number: US-ASTRAZENECA-2011SE41566

PATIENT
  Age: 53 Year
  Sex: Female

DRUGS (10)
  1. CALCIUM [Concomitant]
     Dosage: DOUBLE DOSE
     Dates: start: 20090101
  2. PAXIL [Concomitant]
     Indication: EMOTIONAL DISTRESS
  3. SYMBICORT [Concomitant]
  4. NEXIUM [Suspect]
     Indication: GASTROOESOPHAGEAL REFLUX DISEASE
     Route: 048
     Dates: start: 20060101, end: 20100901
  5. PRILOSEC [Concomitant]
     Dates: start: 19900101
  6. ZANTAC [Concomitant]
     Dates: start: 19900101
  7. CELABREX [Concomitant]
  8. PAXIL [Concomitant]
     Indication: DEPRESSION
  9. PAXIL [Concomitant]
     Indication: ANXIETY
  10. PREVACID [Concomitant]
     Dates: start: 19900101

REACTIONS (8)
  - DEPRESSION [None]
  - ANXIETY [None]
  - PATELLA FRACTURE [None]
  - EMOTIONAL DISTRESS [None]
  - OSTEOPOROSIS [None]
  - VITAMIN D DEFICIENCY [None]
  - BONE DISORDER [None]
  - OSTEOMYELITIS [None]
